FAERS Safety Report 20698727 (Version 6)
Quarter: 2022Q4

REPORT INFORMATION
  Report Type: Spontaneous
  Country: US (occurrence: US)
  Receive Date: 20220412
  Receipt Date: 20221207
  Transmission Date: 20230112
  Serious: No
  Sender: FDA-Public Use
  Company Number: US-NOVARTISTESTPH-NVSC2022US078569

PATIENT
  Sex: Female

DRUGS (1)
  1. CRIZANLIZUMAB [Suspect]
     Active Substance: CRIZANLIZUMAB
     Indication: Retinal vascular disorder
     Dosage: UNK
     Route: 042

REACTIONS (3)
  - Arthralgia [Recovered/Resolved]
  - Chest pain [Unknown]
  - Product use in unapproved indication [Unknown]
